FAERS Safety Report 4394503-6 (Version None)
Quarter: 2004Q3

REPORT INFORMATION
  Report Type: 
  Country: None (occurrence: None)
  Receive Date: 20040706
  Receipt Date: 20040625
  Transmission Date: 20050211
  Serious: Yes (Death)
  Sender: FDA-Public Use
  Company Number: KII-2000-0002109

PATIENT
  Sex: Female

DRUGS (1)
  1. OXYCONTIN [Suspect]
     Indication: CANCER PAIN

REACTIONS (3)
  - BRAIN NEOPLASM MALIGNANT [None]
  - CONDITION AGGRAVATED [None]
  - NEOPLASM MALIGNANT [None]
